FAERS Safety Report 21928158 (Version 1)
Quarter: 2023Q1

REPORT INFORMATION
  Report Type: Spontaneous
  Country: US (occurrence: US)
  Receive Date: 20230130
  Receipt Date: 20230130
  Transmission Date: 20230417
  Serious: No
  Sender: FDA-Public Use
  Company Number: US-BAUSCHBL-2023BNL000621

PATIENT
  Age: 82 Year
  Sex: Male

DRUGS (2)
  1. TIMOPTIC [Suspect]
     Active Substance: TIMOLOL MALEATE
     Indication: Intraocular pressure test
     Route: 065
  2. TIMOPTIC [Suspect]
     Active Substance: TIMOLOL MALEATE

REACTIONS (1)
  - Drug ineffective [Unknown]
